FAERS Safety Report 6496615-X (Version None)
Quarter: 2009Q4

REPORT INFORMATION
  Report Type: 
  Country: None (occurrence: None)
  Receive Date: 20091210
  Receipt Date: 20091130
  Transmission Date: 20100525
  Serious: Yes (Hospitalization)
  Sender: FDA-Public Use
  Company Number: 2009SP039389

PATIENT
  Age: 38 Year
  Sex: Female
  Weight: 73 kg

DRUGS (4)
  1. SPOROSTATIN U/F (GRISEOFULVIN) [Suspect]
     Indication: DRUG USE FOR UNKNOWN INDICATION
     Dosage: PO
     Route: 048
     Dates: start: 20091127, end: 20091129
  2. ATENOLOL [Concomitant]
  3. ANCORON [Concomitant]
  4. ACETYLSALICYLIC ACID SRT [Concomitant]

REACTIONS (5)
  - DIZZINESS [None]
  - FEELING HOT [None]
  - HEADACHE [None]
  - NAUSEA [None]
  - TACHYCARDIA [None]
